FAERS Safety Report 4643345-2 (Version None)
Quarter: 2005Q2

REPORT INFORMATION
  Report Type: 
  Country: None (occurrence: None)
  Receive Date: 20050421
  Receipt Date: 20050218
  Transmission Date: 20051028
  Serious: Yes (Other)
  Sender: FDA-Public Use
  Company Number: 2005007861

PATIENT
  Sex: Female
  Weight: 74.8435 kg

DRUGS (1)
  1. DILANTIN [Suspect]
     Indication: ILL-DEFINED DISORDER

REACTIONS (2)
  - BRAIN OPERATION [None]
  - DRUG HYPERSENSITIVITY [None]
